FAERS Safety Report 25573631 (Version 1)
Quarter: 2025Q3

REPORT INFORMATION
  Report Type: Spontaneous
  Country: JP (occurrence: JP)
  Receive Date: 20250717
  Receipt Date: 20250717
  Transmission Date: 20251020
  Serious: Yes (Other)
  Sender: AMGEN
  Company Number: JP-AMGEN-JPNSP2025136610

PATIENT
  Age: 73 Year
  Sex: Female

DRUGS (1)
  1. IMDELLTRA [Suspect]
     Active Substance: TARLATAMAB-DLLE
     Indication: Product used for unknown indication
     Route: 040

REACTIONS (4)
  - Dyscalculia [Unknown]
  - Cognitive disorder [Unknown]
  - Hyponatraemia [Unknown]
  - Decreased appetite [Unknown]
